FAERS Safety Report 21903484 (Version 1)
Quarter: 2023Q1

REPORT INFORMATION
  Report Type: Spontaneous
  Country: DE (occurrence: DE)
  Receive Date: 20230124
  Receipt Date: 20230124
  Transmission Date: 20230417
  Serious: Yes (Other)
  Sender: FDA-Public Use
  Company Number: DE-BAYER-2023A004659

PATIENT
  Age: 28 Year
  Sex: Male
  Weight: 88 kg

DRUGS (1)
  1. JIVI [Suspect]
     Active Substance: DAMOCTOCOG ALFA PEGOL
     Indication: Factor VIII deficiency
     Dosage: UNK
     Dates: start: 20221109, end: 20221128

REACTIONS (2)
  - Anti factor VIII antibody positive [Recovering/Resolving]
  - Haemorrhage [None]

NARRATIVE: CASE EVENT DATE: 20221116
